FAERS Safety Report 5807359-9 (Version None)
Quarter: 2008Q3

REPORT INFORMATION
  Report Type: 
  Country: None (occurrence: None)
  Receive Date: 20080711
  Receipt Date: 20080701
  Transmission Date: 20090109
  Serious: Yes (Hospitalization)
  Sender: FDA-Public Use
  Company Number: US-JNJFOC-20080605202

PATIENT
  Sex: Male
  Weight: 98.8 kg

DRUGS (9)
  1. DOXORUBICIN HCL [Suspect]
     Indication: MULTIPLE MYELOMA
     Route: 042
  2. REVLIMID [Suspect]
     Indication: MULTIPLE MYELOMA
     Route: 048
  3. DEXAMETHASONE [Suspect]
     Indication: MULTIPLE MYELOMA
     Route: 048
  4. MICARDIS [Concomitant]
     Route: 065
  5. DOXAZOSIN MESYLATE [Concomitant]
     Route: 065
  6. OXYBUTYNIN CHLORIDE [Concomitant]
     Route: 065
  7. OMEPRAZOLE [Concomitant]
     Route: 065
  8. DARVOCET-N 100 [Concomitant]
     Route: 065
  9. ACYCLOVIR [Concomitant]
     Route: 065

REACTIONS (4)
  - CHILLS [None]
  - CONFUSIONAL STATE [None]
  - DYSPNOEA [None]
  - FATIGUE [None]
